FAERS Safety Report 11472493 (Version 1)
Quarter: 2015Q3

REPORT INFORMATION
  Report Type: Spontaneous
  Country: US (occurrence: US)
  Receive Date: 20150908
  Receipt Date: 20150908
  Transmission Date: 20151125
  Serious: Yes (Other)
  Sender: FDA-Public Use
  Company Number: US-CELGENEUS-USA-2015091052

PATIENT
  Sex: Male

DRUGS (3)
  1. THALOMID [Suspect]
     Active Substance: THALIDOMIDE
     Indication: PLASMA CELL MYELOMA
     Route: 048
     Dates: start: 200109
  2. THALOMID [Suspect]
     Active Substance: THALIDOMIDE
     Route: 048
     Dates: start: 200604
  3. THALOMID [Suspect]
     Active Substance: THALIDOMIDE
     Dosage: 300-50 MG
     Route: 048
     Dates: start: 200110

REACTIONS (1)
  - Hepatitis [Unknown]
